FAERS Safety Report 15010992 (Version 3)
Quarter: 2018Q2

REPORT INFORMATION
  Report Type: Spontaneous
  Country: PT (occurrence: PT)
  Receive Date: 20180614
  Receipt Date: 20180614
  Transmission Date: 20180711
  Serious: Yes (Other)
  Sender: FDA-Public Use
  Company Number: PHHY2018PT020603

PATIENT
  Age: 65 Year
  Sex: Male

DRUGS (11)
  1. IBRUTINIB [Suspect]
     Active Substance: IBRUTINIB
     Indication: CHRONIC LYMPHOCYTIC LEUKAEMIA
     Dosage: 420 MG, UNK
     Route: 048
     Dates: end: 201610
  2. IBRUTINIB [Suspect]
     Active Substance: IBRUTINIB
     Dosage: 140 MG, UNK
     Route: 048
     Dates: start: 201603
  3. IBRUTINIB [Suspect]
     Active Substance: IBRUTINIB
     Dosage: 420 MG, UNK
     Route: 048
     Dates: start: 201510, end: 201512
  4. CYTARABINE. [Suspect]
     Active Substance: CYTARABINE
     Dosage: DOSAGE FORM: UNSPECIFIED, LIPOSOMAL CYTARABINE-NO RESPONSE,MIGHT LED TO WORSENED NEUROLOGIC SYMPTOMS
     Route: 065
  5. CYTARABINE. [Suspect]
     Active Substance: CYTARABINE
     Dosage: DOSAGE FORM: UNSPECIFIED, LIPOSOMAL CYTARABINE-NO RESPONSE,MIGHT LED TO WORSENED NEUROLOGIC SYMPTOMS
     Route: 065
  6. IBRUTINIB [Suspect]
     Active Substance: IBRUTINIB
     Dosage: 420 MG, UNK
     Route: 048
     Dates: start: 201611
  7. METHOTREXATE. [Suspect]
     Active Substance: METHOTREXATE
     Dosage: DOSAGE FORM: UNSPECIFIED, SYSTEMIC HIGH DOSE OF 3 G/M2 UNTIL MAY-2016
     Route: 065
  8. PREDNISOLONE. [Suspect]
     Active Substance: PREDNISOLONE
     Indication: CHRONIC LYMPHOCYTIC LEUKAEMIA
     Dosage: DOSAGE FORM: UNSPECIFIED, ADMINISTERED 15 TIMES, BI-WEEKLY-NO POSITIVE RESPONSE
     Route: 065
  9. IBRUTINIB [Suspect]
     Active Substance: IBRUTINIB
     Dosage: 280 MG, UNK
     Route: 048
  10. METHOTREXATE. [Suspect]
     Active Substance: METHOTREXATE
     Indication: CHRONIC LYMPHOCYTIC LEUKAEMIA
     Dosage: 1 DF, UNK (DOSAGE FORM: UNSPECIFIED, HIGH DOSE, TOTAL 6 CYCLES.12 MG.)
     Route: 065
     Dates: start: 201510
  11. CYTARABINE. [Suspect]
     Active Substance: CYTARABINE
     Indication: CHRONIC LYMPHOCYTIC LEUKAEMIA
     Dosage: DOSAGE FORM: UNSPECIFIED, ADMINISTERED 15 TIMES, BI-WEEKLY-NO POSITIVE RESPONSE
     Route: 065

REACTIONS (4)
  - Intestinal pseudo-obstruction [Recovered/Resolved]
  - Haematuria [Recovered/Resolved]
  - Product use in unapproved indication [Unknown]
  - Off label use [Unknown]

NARRATIVE: CASE EVENT DATE: 201510
